FAERS Safety Report 5935390-1 (Version None)
Quarter: 2008Q4

REPORT INFORMATION
  Report Type: 
  Country: None (occurrence: None)
  Receive Date: 20081028
  Receipt Date: 20081020
  Transmission Date: 20090506
  Serious: Yes (Death)
  Sender: FDA-Public Use
  Company Number: 2008AP002815

PATIENT
  Age: 62 Year
  Sex: Female

DRUGS (2)
  1. RISPERDAL [Suspect]
  2. ABILIFY [Suspect]
     Indication: SCHIZOPHRENIA

REACTIONS (1)
  - PULMONARY EMBOLISM [None]
